FAERS Safety Report 11473689 (Version 1)
Quarter: 2015Q3

REPORT INFORMATION
  Report Type: Spontaneous
  Country: GB (occurrence: None)
  Receive Date: 20150908
  Receipt Date: 20150908
  Transmission Date: 20151125
  Serious: Yes (Disabling)
  Sender: FDA-Public Use
  Company Number: None

PATIENT
  Age: 24 Year
  Sex: Male
  Weight: 56.7 kg

DRUGS (1)
  1. FINASTERIDE 1MG MERCK [Suspect]
     Active Substance: FINASTERIDE
     Indication: ALOPECIA
     Dosage: 1 PILL
     Route: 048

REACTIONS (8)
  - Headache [None]
  - Sexual dysfunction [None]
  - Impaired work ability [None]
  - Loss of libido [None]
  - Pain in extremity [None]
  - Fatigue [None]
  - Sleep disorder [None]
  - Emotional disorder [None]

NARRATIVE: CASE EVENT DATE: 20010903
